FAERS Safety Report 7980080-7 (Version None)
Quarter: 2011Q4

REPORT INFORMATION
  Report Type: 
  Country: None (occurrence: None)
  Receive Date: 20111208
  Receipt Date: 20111130
  Transmission Date: 20120403
  Serious: Yes (Death)
  Sender: FDA-Public Use
  Company Number: DSA_48102_2011

PATIENT
  Sex: Male

DRUGS (8)
  1. HYDROCDONE [Concomitant]
  2. ASPIRIN [Concomitant]
  3. MIRTAZAPINE [Concomitant]
  4. XENAZINE [Suspect]
     Indication: HUNTINGTON'S DISEASE
     Dosage: 12.5 MG QID ORAL
     Route: 048
     Dates: start: 20100720
  5. CLONAZEPAM [Concomitant]
  6. MELOXICAM [Concomitant]
  7. ZYPREXA [Concomitant]
  8. B12 /00056201/ [Concomitant]

REACTIONS (1)
  - COMPLETED SUICIDE [None]
